FAERS Safety Report 12918732 (Version 12)
Quarter: 2018Q1

REPORT INFORMATION
  Report Type: Spontaneous
  Country: US (occurrence: US)
  Receive Date: 20161107
  Receipt Date: 20180327
  Transmission Date: 20180508
  Serious: Yes (Congenital Anomaly, Other)
  Sender: FDA-Public Use
  Company Number: PHEH2016US028373

PATIENT
  Sex: Male

DRUGS (3)
  1. ONDANSETRONE DR. REDDY^S [Suspect]
     Active Substance: ONDANSETRON HYDROCHLORIDE
     Indication: FOETAL EXPOSURE DURING PREGNANCY
     Route: 064
  2. ONDANSETRON. [Suspect]
     Active Substance: ONDANSETRON
     Indication: FOETAL EXPOSURE DURING PREGNANCY
     Route: 064
  3. ZOFRAN [Suspect]
     Active Substance: ONDANSETRON HYDROCHLORIDE
     Indication: FOETAL EXPOSURE DURING PREGNANCY
     Route: 064

REACTIONS (40)
  - Gross motor delay [Unknown]
  - Pain [Unknown]
  - Ear infection [Unknown]
  - Anaemia neonatal [Unknown]
  - Cardiac murmur [Unknown]
  - Injury [Unknown]
  - Pyrexia [Unknown]
  - Seizure [Unknown]
  - Cough [Unknown]
  - Cerumen impaction [Unknown]
  - Colitis [Unknown]
  - Feeding disorder [Unknown]
  - Anxiety [Unknown]
  - Diarrhoea [Unknown]
  - Heart disease congenital [Unknown]
  - Congenital central nervous system anomaly [Unknown]
  - Encephalopathy neonatal [Unknown]
  - Premature baby [Unknown]
  - Congenital anomaly [Unknown]
  - Spina bifida [Unknown]
  - Hydrocephalus [Unknown]
  - Jaundice neonatal [Unknown]
  - Retinopathy [Unknown]
  - Conductive deafness [Unknown]
  - Nasal congestion [Unknown]
  - Atrial septal defect [Unknown]
  - Foetal exposure during pregnancy [Unknown]
  - Neonatal respiratory distress [Unknown]
  - Gastrooesophageal reflux disease [Unknown]
  - Tympanic membrane perforation [Unknown]
  - Speech disorder [Unknown]
  - Anhedonia [Unknown]
  - Dacryostenosis congenital [Unknown]
  - Cerebral infarction [Unknown]
  - Upper respiratory tract infection [Unknown]
  - Osteopenia [Unknown]
  - Gastroenteritis viral [Unknown]
  - Rhinorrhoea [Unknown]
  - Conjunctivitis [Unknown]
  - Dysphagia [Unknown]
